FAERS Safety Report 13514906 (Version 3)
Quarter: 2017Q2

REPORT INFORMATION
  Report Type: Report from Study
  Country: AU (occurrence: AU)
  Receive Date: 20170504
  Receipt Date: 20170519
  Transmission Date: 20170830
  Serious: Yes (Hospitalization)
  Sender: FDA-Public Use
  Company Number: AU-ROCHE-1923399

PATIENT
  Age: 35 Year
  Sex: Female
  Weight: 61.7 kg

DRUGS (14)
  1. PANADOL [Concomitant]
     Active Substance: ACETAMINOPHEN
     Indication: THROAT IRRITATION
     Dosage: 2 TABLETS ON 6-7TH APRIL?2 TABLETS ON 7-8 APRIL
     Route: 048
     Dates: start: 20170406, end: 20170408
  2. PANADOL [Concomitant]
     Active Substance: ACETAMINOPHEN
     Indication: PAIN
  3. METHYLPREDNISOLONE. [Suspect]
     Active Substance: METHYLPREDNISOLONE
     Indication: PREMEDICATION
     Dosage: TO BE ADMINISTERED 30 MINUTES PRIOR TO EACH OCRELIZUMAB INFUSION, AS PER PROTOCOL.
     Route: 042
     Dates: start: 20170419, end: 20170419
  4. OCRELIZUMAB [Suspect]
     Active Substance: OCRELIZUMAB
     Dosage: TO BE ADMINISTERED AS 300 MG ON DAYS 1 AND 15 OF CYCLE 1, FOLLOWED BY 600 MG ON DAY 1 OF EACH SUBSEQ
     Route: 042
     Dates: start: 20170419, end: 20170419
  5. METHYLPREDNISOLONE. [Suspect]
     Active Substance: METHYLPREDNISOLONE
     Route: 042
     Dates: start: 20170405, end: 20170405
  6. VITAMIN B COMPLEX [Concomitant]
     Active Substance: CYANOCOBALAMIN\DEXPANTHENOL\NIACINAMIDE\PYRIDOXINE HYDROCHLORIDE\RIBOFLAVIN 5^-PHOSPHATE SODIUM\THIAMINE HYDROCHLORIDE\VITAMIN B COMPLEX
     Indication: PROPHYLAXIS
     Route: 048
     Dates: start: 201406
  7. PANADOL [Concomitant]
     Active Substance: ACETAMINOPHEN
     Indication: FLUSHING
  8. CETIRIZINE [Concomitant]
     Active Substance: CETIRIZINE HYDROCHLORIDE
     Route: 048
     Dates: start: 20170405, end: 20170405
  9. OCRELIZUMAB [Suspect]
     Active Substance: OCRELIZUMAB
     Indication: RELAPSING-REMITTING MULTIPLE SCLEROSIS
     Dosage: TO BE ADMINISTERED AS 300 MG ON DAYS 1 AND 15 OF CYCLE 1, FOLLOWED BY 600 MG ON DAY 1 OF EACH SUBSEQ
     Route: 042
     Dates: start: 20170405, end: 20170405
  10. FLAXSEED [Concomitant]
     Active Substance: FLAX SEED
     Indication: PROPHYLAXIS
     Route: 048
     Dates: start: 201406
  11. PANADOL [Concomitant]
     Active Substance: ACETAMINOPHEN
     Indication: PYREXIA
  12. INNER HEALTH PLUS [Concomitant]
     Indication: PROPHYLAXIS
     Route: 048
     Dates: start: 201406
  13. PANADOL [Concomitant]
     Active Substance: ACETAMINOPHEN
     Indication: COUGH
  14. CETIRIZINE [Concomitant]
     Active Substance: CETIRIZINE HYDROCHLORIDE
     Dosage: ONCE BEFORE OCRELIZUMAB INFUSION
     Route: 048
     Dates: start: 20170419, end: 20170419

REACTIONS (1)
  - Infusion related reaction [Recovered/Resolved]

NARRATIVE: CASE EVENT DATE: 20170419
